FAERS Safety Report 7641411 (Version 2)
Quarter: 2012Q4

REPORT INFORMATION
  Report Type: 
  Country: US (occurrence: US)
  Receive Date: 20101026
  Receipt Date: 20121207
  Transmission Date: 20130627
  Serious: No
  Sender: FDA-Public Use
  Company Number: US-PFIZER INC-2010029512

PATIENT
  Age: 59 Year
  Sex: Female
  Weight: 56.2 kg

DRUGS (2)
  1. LIPITOR [Suspect]
     Indication: BLOOD CHOLESTEROL ABNORMAL
     Dosage: 20 mg, daily
     Route: 048
     Dates: start: 2002, end: 2012
  2. LIPITOR [Suspect]
     Dosage: 30 mg (1 tablet of 20 mg and one tablet of 10 mg) daily
     Dates: start: 2012

REACTIONS (3)
  - Throat irritation [Unknown]
  - Dysgeusia [Unknown]
  - Dysphagia [Not Recovered/Not Resolved]
